FAERS Safety Report 8580462-9 (Version None)
Quarter: 2012Q3

REPORT INFORMATION
  Report Type: 
  Country: None (occurrence: None)
  Receive Date: 20120808
  Receipt Date: 20060612
  Transmission Date: 20120928
  Serious: Yes (Hospitalization, Other)
  Sender: FDA-Public Use
  Company Number: US-ROCHE-1098658

PATIENT
  Sex: Female

DRUGS (5)
  1. XOLAIR [Suspect]
     Indication: ASTHMA
  2. ZITHROMAX [Concomitant]
  3. FLUTICASONE PROPIONATE [Concomitant]
  4. SOLU-MEDROL [Concomitant]
     Route: 042
  5. TESSALON [Concomitant]

REACTIONS (8)
  - COUGH [None]
  - CHEST DISCOMFORT [None]
  - PYREXIA [None]
  - HYPERHIDROSIS [None]
  - DYSPNOEA [None]
  - SYNCOPE [None]
  - ASTHMA [None]
  - PNEUMONIA [None]
